FAERS Safety Report 13109444 (Version 3)
Quarter: 2017Q1

REPORT INFORMATION
  Report Type: Spontaneous
  Country: US (occurrence: US)
  Receive Date: 20170112
  Receipt Date: 20170213
  Transmission Date: 20170428
  Serious: Yes (Other)
  Sender: FDA-Public Use
  Company Number: US-AKORN PHARMACEUTICALS-2016AKN00918

PATIENT
  Age: 18 Year
  Sex: Female

DRUGS (4)
  1. MYORISAN [Suspect]
     Active Substance: ISOTRETINOIN
     Indication: ACNE
     Dosage: 30 MG, 2X/DAY
     Route: 048
     Dates: start: 20161010, end: 20161208
  2. ALLESSE [Concomitant]
     Dosage: 1 TABLETS, 1X/DAY
  3. MYORISAN [Suspect]
     Active Substance: ISOTRETINOIN
     Indication: ACNE
     Dosage: 40 MG, 1X/DAY
     Route: 048
     Dates: start: 20160906, end: 201611
  4. ABSORICA [Suspect]
     Active Substance: ISOTRETINOIN
     Indication: ACNE
     Dosage: 30 MG, 2X/DAY
     Route: 048
     Dates: start: 20161114, end: 20161208

REACTIONS (8)
  - Nausea [Recovered/Resolved]
  - Meniscus injury [Recovering/Resolving]
  - Vomiting [Recovered/Resolved]
  - Restlessness [Recovered/Resolved]
  - Crying [Recovered/Resolved]
  - Ligament rupture [Recovering/Resolving]
  - Anxiety [Recovered/Resolved]
  - Pain [Recovering/Resolving]

NARRATIVE: CASE EVENT DATE: 20161220
